FAERS Safety Report 11330688 (Version 1)
Quarter: 2015Q3

REPORT INFORMATION
  Report Type: Spontaneous
  Country: JP (occurrence: JP)
  Receive Date: 20150803
  Receipt Date: 20150803
  Transmission Date: 20151125
  Serious: Yes (Hospitalization, Other)
  Sender: FDA-Public Use
  Company Number: JP-GLAXOSMITHKLINE-JP2015JPN078989

PATIENT
  Age: 55 Year
  Sex: Female

DRUGS (10)
  1. MYORELARK [Concomitant]
  2. SOLANAX [Concomitant]
     Active Substance: ALPRAZOLAM
     Dosage: 2 DF, TID
  3. TANDOSPIRONE CITRATE [Concomitant]
     Active Substance: TANDOSPIRONE CITRATE
     Dosage: 1 DF, BID
  4. FLUVOXAMINE MALEATE. [Concomitant]
     Active Substance: FLUVOXAMINE MALEATE
     Dosage: 25 MG, BID
  5. PZC [Concomitant]
     Active Substance: PERPHENAZINE
     Indication: ANXIETY
     Dosage: 2 MG, PRN
  6. LAMICTAL [Suspect]
     Active Substance: LAMOTRIGINE
     Indication: BIPOLAR DISORDER
     Dosage: 25 MG, QD
     Route: 048
     Dates: start: 20150526, end: 20150604
  7. MYONAL [Concomitant]
     Active Substance: EPERISONE HYDROCHLORIDE
     Dosage: 1 DF, BID
  8. MERISLON [Concomitant]
     Active Substance: BETAHISTINE MESILATE
     Dosage: 1 DF, TID
  9. ALLEGRA [Concomitant]
     Active Substance: FEXOFENADINE HYDROCHLORIDE
     Dosage: 1 DF, BID
  10. PRIMPERAN [Concomitant]
     Active Substance: METOCLOPRAMIDE HYDROCHLORIDE
     Dosage: 1 DF, TID

REACTIONS (5)
  - Rash generalised [Recovering/Resolving]
  - Rash generalised [Recovered/Resolved]
  - Toxic skin eruption [Recovering/Resolving]
  - Pruritus [Recovering/Resolving]
  - Eczema [Recovering/Resolving]

NARRATIVE: CASE EVENT DATE: 20150605
